FAERS Safety Report 10018402 (Version 1)
Quarter: 2014Q1

REPORT INFORMATION
  Report Type: Report from Study
  Country: CA (occurrence: CA)
  Receive Date: 20140318
  Receipt Date: 20140318
  Transmission Date: 20141002
  Serious: Yes (Other)
  Sender: FDA-Public Use
  Company Number: CA-TEVA-468378USA

PATIENT
  Sex: Female

DRUGS (7)
  1. COPAXONE [Suspect]
     Indication: MULTIPLE SCLEROSIS
     Dates: start: 20121001
  2. VITAMIN D [Concomitant]
  3. VESICARE [Concomitant]
  4. AMITRIPTYLINE [Concomitant]
  5. LYRICA [Concomitant]
  6. NEXIUM [Concomitant]
  7. CYMBALTA [Concomitant]

REACTIONS (3)
  - Multiple sclerosis [Not Recovered/Not Resolved]
  - Haemoglobin decreased [Unknown]
  - Transfusion [Unknown]
